APPROVED DRUG PRODUCT: METHYLDOPATE HYDROCHLORIDE
Active Ingredient: METHYLDOPATE HYDROCHLORIDE
Strength: 50MG/ML
Dosage Form/Route: INJECTABLE;INJECTION
Application: A071279 | Product #001
Applicant: AMERICAN REGENT INC
Approved: Oct 2, 1987 | RLD: No | RS: No | Type: DISCN